FAERS Safety Report 11457664 (Version 1)
Quarter: 2015Q3

REPORT INFORMATION
  Report Type: Spontaneous
  Country: NO (occurrence: NO)
  Receive Date: 20150904
  Receipt Date: 20150904
  Transmission Date: 20151125
  Serious: Yes (Other)
  Sender: FDA-Public Use
  Company Number: NO-WATSON-2015-18642

PATIENT
  Age: 68 Year
  Sex: Female

DRUGS (2)
  1. ALENDRONIC ACID (UNKNOWN) [Suspect]
     Active Substance: ALENDRONIC ACID
     Indication: PRODUCT USED FOR UNKNOWN INDICATION
     Dosage: UNK
     Route: 065
  2. FOSAMAX [Suspect]
     Active Substance: ALENDRONATE SODIUM
     Indication: PRODUCT USED FOR UNKNOWN INDICATION
     Dosage: UNK
     Route: 065

REACTIONS (9)
  - Abdominal pain [Unknown]
  - Femur fracture [Recovered/Resolved with Sequelae]
  - Abdominal discomfort [Unknown]
  - Osteopenia [Unknown]
  - Plastic surgery [Unknown]
  - Bone pain [Recovered/Resolved with Sequelae]
  - Neoplasm skin [Unknown]
  - Haemorrhagic anaemia [Recovered/Resolved]
  - Laboratory test abnormal [Unknown]
